FAERS Safety Report 6659499-2 (Version None)
Quarter: 2010Q1

REPORT INFORMATION
  Report Type: 
  Country: None (occurrence: None)
  Receive Date: 20100330
  Receipt Date: 20100318
  Transmission Date: 20100710
  Serious: Yes (Other)
  Sender: FDA-Public Use
  Company Number: DE-ELI_LILLY_AND_COMPANY-DE201003002609

PATIENT

DRUGS (2)
  1. CYMBALTA [Suspect]
     Dosage: 60 MG, UNKNOWN
     Route: 064
     Dates: start: 20050101, end: 20090421
  2. LORAZEPAM [Concomitant]
     Dosage: 0.5 MG, UNKNOWN
     Route: 065
     Dates: start: 20090423

REACTIONS (2)
  - DRUG EXPOSURE DURING PREGNANCY [None]
  - LEUKAEMIA [None]
